FAERS Safety Report 17258420 (Version 1)
Quarter: 2020Q1

REPORT INFORMATION
  Report Type: Other
  Country: US (occurrence: US)
  Receive Date: 20200110
  Receipt Date: 20200110
  Transmission Date: 20200409
  Serious: Yes (Hospitalization)
  Sender: FDA-Public Use
  Company Number: US-SUNRISE PHARMACEUTICAL, INC.-2078831

PATIENT
  Age: 28 Year
  Sex: Female

DRUGS (1)
  1. OXYCODONE HYDROCHLORIDE. [Suspect]
     Active Substance: OXYCODONE HYDROCHLORIDE
     Indication: CARPAL TUNNEL SYNDROME
     Route: 048

REACTIONS (8)
  - Substance use disorder [Recovered/Resolved]
  - Adrenal insufficiency [Recovered/Resolved]
  - Wrong technique in product usage process [Recovered/Resolved]
  - Palpitations [Recovered/Resolved]
  - Dizziness [Recovered/Resolved]
  - Hot flush [Recovered/Resolved]
  - Intentional overdose [Unknown]
  - Oligomenorrhoea [Recovered/Resolved]
